FAERS Safety Report 8012343-3 (Version None)
Quarter: 2011Q4

REPORT INFORMATION
  Report Type: 
  Country: None (occurrence: None)
  Receive Date: 20111228
  Receipt Date: 20111219
  Transmission Date: 20120403
  Serious: Yes (Death)
  Sender: FDA-Public Use
  Company Number: US-PFIZER INC-2011309900

PATIENT
  Age: 21 Year
  Sex: Male

DRUGS (1)
  1. GUAIFENESIN [Suspect]

REACTIONS (1)
  - DRUG ABUSE [None]
